FAERS Safety Report 18434345 (Version 2)
Quarter: 2020Q4

REPORT INFORMATION
  Report Type: Spontaneous
  Country: CR (occurrence: CR)
  Receive Date: 20201028
  Receipt Date: 20201210
  Transmission Date: 20210114
  Serious: Yes (Life-Threatening, Other)
  Sender: FDA-Public Use
  Company Number: CR-SA-2020SA297855

PATIENT

DRUGS (1)
  1. MYOZYME [Suspect]
     Active Substance: ALGLUCOSIDASE ALFA
     Indication: GLYCOGEN STORAGE DISEASE TYPE II
     Dosage: UNK

REACTIONS (4)
  - Skin cancer [Not Recovered/Not Resolved]
  - Skin haemorrhage [Unknown]
  - Biopsy skin [Unknown]
  - Pain [Unknown]

NARRATIVE: CASE EVENT DATE: 20201020
